FAERS Safety Report 4925944-3 (Version None)
Quarter: 2006Q1

REPORT INFORMATION
  Report Type: 
  Country: None (occurrence: None)
  Receive Date: 20060228
  Receipt Date: 20050419
  Transmission Date: 20060701
  Serious: No
  Sender: FDA-Public Use
  Company Number: US-GLAXOSMITHKLINE-A0554834A

PATIENT
  Age: 40 Year
  Sex: Female

DRUGS (2)
  1. LAMICTAL [Suspect]
     Indication: BIPOLAR DISORDER
     Dosage: 50MG PER DAY
     Route: 048
  2. UNKNOWN [Concomitant]

REACTIONS (5)
  - ALOPECIA [None]
  - DECREASED APPETITE [None]
  - DYSPHAGIA [None]
  - PYREXIA [None]
  - WEIGHT DECREASED [None]
